FAERS Safety Report 16895775 (Version 1)
Quarter: 2019Q4

REPORT INFORMATION
  Report Type: Spontaneous
  Country: FR (occurrence: FR)
  Receive Date: 20191008
  Receipt Date: 20191008
  Transmission Date: 20200122
  Serious: Yes (Hospitalization)
  Sender: FDA-Public Use
  Company Number: FR-INDIVIOR US-INDV-121793-2019

PATIENT
  Sex: Male
  Weight: 65 kg

DRUGS (1)
  1. SUBUTEX [Suspect]
     Active Substance: BUPRENORPHINE HYDROCHLORIDE
     Indication: INTENTIONAL PRODUCT MISUSE
     Dosage: 4 MILLIGRAM, QD
     Route: 042
     Dates: start: 1991, end: 20180411

REACTIONS (3)
  - Product use issue [Recovered/Resolved]
  - Vascular pseudoaneurysm [Recovered/Resolved]
  - Intentional product misuse [Recovered/Resolved]

NARRATIVE: CASE EVENT DATE: 1991
